FAERS Safety Report 6115590-0 (Version None)
Quarter: 2009Q1

REPORT INFORMATION
  Report Type: 
  Country: None (occurrence: None)
  Receive Date: 20090313
  Receipt Date: 20090310
  Transmission Date: 20090719
  Serious: Yes (Life-Threatening, Hospitalization)
  Sender: FDA-Public Use
  Company Number: FR-WYE-G02081308

PATIENT
  Sex: Male
  Weight: 10 kg

DRUGS (5)
  1. REFACTO [Suspect]
     Indication: FACTOR VIII DEFICIENCY
     Dosage: 500 IU/INJ WITH A TOTAL DOSE OF 4500 IU
     Route: 042
     Dates: start: 20080723, end: 20080727
  2. REFACTO [Suspect]
     Route: 042
     Dates: start: 20080829, end: 20090101
  3. REFACTO [Suspect]
     Route: 042
     Dates: start: 20080728, end: 20080828
  4. REFACTO [Suspect]
     Route: 042
     Dates: start: 20090101, end: 20090201
  5. REFACTO [Suspect]
     Route: 042
     Dates: start: 20090201

REACTIONS (6)
  - COAGULATION FACTOR VIII LEVEL DECREASED [None]
  - DRUG INEFFECTIVE [None]
  - FACTOR VIII INHIBITION [None]
  - HAEMARTHROSIS [None]
  - INFUSION SITE HAEMATOMA [None]
  - SPONTANEOUS HAEMATOMA [None]
